FAERS Safety Report 22639679 (Version 1)
Quarter: 2023Q2

REPORT INFORMATION
  Report Type: Spontaneous
  Country: US (occurrence: None)
  Receive Date: 20230623
  Receipt Date: 20230623
  Transmission Date: 20230722
  Serious: Yes (unspecified)
  Sender: FDA-Public Use
  Company Number: None

PATIENT

DRUGS (1)
  1. EPTIFIBATIDE [Suspect]
     Active Substance: EPTIFIBATIDE

REACTIONS (2)
  - Device issue [None]
  - Accidental exposure to product [None]

NARRATIVE: CASE EVENT DATE: 20230619
